FAERS Safety Report 15234593 (Version 1)
Quarter: 2018Q3

REPORT INFORMATION
  Report Type: Spontaneous
  Country: GB (occurrence: GB)
  Receive Date: 20180803
  Receipt Date: 20180803
  Transmission Date: 20181010
  Serious: Yes (Life-Threatening, Other)
  Sender: FDA-Public Use
  Company Number: GB-TEVA-2018-GB-934047

PATIENT
  Age: 68 Year
  Sex: Female
  Weight: 69 kg

DRUGS (17)
  1. LORATADINE. [Concomitant]
     Active Substance: LORATADINE
     Dosage: 1 DOSAGE FORMS DAILY;
     Dates: start: 19990504
  2. MONTELUKAST [Concomitant]
     Active Substance: MONTELUKAST SODIUM
     Dosage: 1 DOSAGE FORMS DAILY; EACH EVENING.
     Dates: start: 20160428
  3. CLOBETASOL PROPIONATE. [Concomitant]
     Active Substance: CLOBETASOL PROPIONATE
     Dosage: 1 DOSAGE FORMS DAILY; APPLY SPARINGLY TO THE AFFECTED AREA EACH NIGHT
     Dates: start: 20170510
  4. FLUTICASONE PROPIONATE. [Concomitant]
     Active Substance: FLUTICASONE PROPIONATE
     Dosage: 1 ?2 SPRAYS TO EACH NOSTRIL DAILY
     Route: 045
     Dates: start: 20140211
  5. ATORVASTATIN [Concomitant]
     Active Substance: ATORVASTATIN
     Dosage: 1 DOSAGE FORMS DAILY;
     Dates: start: 20161020
  6. PREDNISOLONE. [Concomitant]
     Active Substance: PREDNISOLONE
     Dosage: 6 DOSAGE FORMS DAILY; FOR 5 DAYS
     Dates: start: 20180515, end: 20180521
  7. SALBUTAMOL [Concomitant]
     Active Substance: ALBUTEROL
     Dosage: ONE OR TWO PUFFS TO BE INHALED FOUR TIMES A DAY
     Route: 055
     Dates: start: 20160414
  8. DOXYCYCLINE. [Concomitant]
     Active Substance: DOXYCYCLINE
     Dosage: 1 DOSAGE FORMS DAILY; TAKE 2 FOR FIRST DOSE
     Dates: start: 20180515, end: 20180520
  9. FLUTICASONE. [Concomitant]
     Active Substance: FLUTICASONE
     Dosage: 4 DOSAGE FORMS DAILY; PUFFS
     Route: 055
     Dates: start: 20160414
  10. LANSOPRAZOLE. [Suspect]
     Active Substance: LANSOPRAZOLE
     Dates: start: 20160428
  11. SALMETEROL [Concomitant]
     Active Substance: SALMETEROL
     Dosage: 1 ?2 PUFFS TWICE A DAY
     Dates: start: 20151006
  12. CLOPIDOGREL [Concomitant]
     Active Substance: CLOPIDOGREL BISULFATE
     Dosage: 1 DOSAGE FORMS DAILY; EACH MORNING, AFTER FOOD ? LONG TERM
     Dates: start: 20160712
  13. VERAPAMIL HYDROCHLORIDE. [Concomitant]
     Active Substance: VERAPAMIL HYDROCHLORIDE
     Dosage: 1 DOSAGE FORMS DAILY;
     Dates: start: 20160621
  14. AZITHROMYCIN ANHYDROUS. [Concomitant]
     Active Substance: AZITHROMYCIN ANHYDROUS
     Dosage: MONDAY, WEDNESDAY AND FRIDAY
     Dates: start: 20130912
  15. HYDROMOL CREAM [Concomitant]
     Dosage: APPLY TO SKIN OR USE AS A SOAP SUBSTITUTE
     Dates: start: 20170510
  16. MOXONIDINE [Concomitant]
     Active Substance: MOXONIDINE
     Dosage: 2 DOSAGE FORMS DAILY;
     Dates: start: 20160712
  17. IRBESARTAN. [Concomitant]
     Active Substance: IRBESARTAN
     Dosage: 1 DOSAGE FORMS DAILY;
     Dates: start: 20150825

REACTIONS (5)
  - Liver function test abnormal [Recovering/Resolving]
  - Blood potassium decreased [Recovering/Resolving]
  - Electrolyte imbalance [Recovering/Resolving]
  - Blood magnesium decreased [Recovering/Resolving]
  - Blood calcium decreased [Recovering/Resolving]

NARRATIVE: CASE EVENT DATE: 20180626
